FAERS Safety Report 7471560-1 (Version None)
Quarter: 2011Q2

REPORT INFORMATION
  Report Type: 
  Country: None (occurrence: None)
  Receive Date: 20110502
  Receipt Date: 20110413
  Transmission Date: 20111010
  Serious: Yes (Other)
  Sender: FDA-Public Use
  Company Number: CIO11005244

PATIENT
  Sex: Male

DRUGS (1)
  1. METAMUCIL-2 [Suspect]
     Dosage: 1 TSP, 3/DAY, ORAL
     Route: 048
     Dates: start: 20101201, end: 20110301

REACTIONS (3)
  - BLOOD CREATININE INCREASED [None]
  - MEDICATION RESIDUE [None]
  - RENAL IMPAIRMENT [None]
